FAERS Safety Report 5442570-0 (Version None)
Quarter: 2007Q3

REPORT INFORMATION
  Report Type: 
  Country: None (occurrence: None)
  Receive Date: 20070830
  Receipt Date: 20070816
  Transmission Date: 20080115
  Serious: Yes (Other)
  Sender: FDA-Public Use
  Company Number: ENT 2007-0139

PATIENT
  Sex: Female
  Weight: 47.62 kg

DRUGS (2)
  1. ENTACAPONE [Suspect]
     Dosage: ORAL
     Route: 048
  2. MIRAPEX [Suspect]

REACTIONS (6)
  - ARTHRALGIA [None]
  - ASTHMA [None]
  - BACK PAIN [None]
  - CONTUSION [None]
  - NECK PAIN [None]
  - PNEUMONIA [None]
